FAERS Safety Report 8778092 (Version 1)
Quarter: 2012Q4

REPORT INFORMATION
  Report Type: 
  Country: US (occurrence: US)
  Receive Date: 20120912
  Receipt Date: 20120912
  Transmission Date: 20130627
  Serious: No
  Sender: FDA-Public Use
  Company Number: US-ASTRAZENECA-2011SE58899

PATIENT
  Age: 61 Year
  Sex: Male
  Weight: 93 kg

DRUGS (3)
  1. TENORETIC [Suspect]
     Indication: ANXIETY
     Dosage: 50 MG QD
     Route: 048
  2. POTASSIUM CHLORIDE [Concomitant]
     Indication: MINERAL SUPPLEMENTATION
  3. ZANTAX [Concomitant]
     Indication: ANXIETY

REACTIONS (7)
  - Hypertension [Unknown]
  - Drug intolerance [Unknown]
  - Hyperhidrosis [Unknown]
  - Feeling abnormal [Unknown]
  - Depression [Unknown]
  - Heart rate decreased [Unknown]
  - Off label use [Unknown]
